FAERS Safety Report 15742093 (Version 2)
Quarter: 2021Q1

REPORT INFORMATION
  Report Type: Report from Study
  Country: US (occurrence: US)
  Receive Date: 20181219
  Receipt Date: 20210324
  Transmission Date: 20210419
  Serious: Yes (Hospitalization, Other)
  Sender: FDA-Public Use
  Company Number: US-TAKEDA-2018TUS035744

PATIENT
  Age: 0 Day
  Sex: Female
  Weight: 2.58 kg

DRUGS (1)
  1. VEDOLIZUMAB [Suspect]
     Active Substance: VEDOLIZUMAB
     Indication: PRODUCT USED FOR UNKNOWN INDICATION
     Dosage: UNK
     Route: 065
     Dates: start: 20180302, end: 20181124

REACTIONS (2)
  - Adverse event [Unknown]
  - Premature baby [Unknown]

NARRATIVE: CASE EVENT DATE: 20181124
